FAERS Safety Report 25968939 (Version 1)
Quarter: 2025Q4

REPORT INFORMATION
  Report Type: Spontaneous
  Country: US (occurrence: None)
  Receive Date: 20251028
  Receipt Date: 20251028
  Transmission Date: 20260118
  Serious: Yes (Death)
  Sender: FDA-CTU
  Company Number: None

PATIENT
  Age: 82 Year
  Sex: Female

DRUGS (1)
  1. COLLAGENASE SANTYL [Suspect]
     Active Substance: COLLAGENASE CLOSTRIDIUM HISTOLYTICUM
     Indication: Wound
     Dosage: OTHER STRENGTH : 250U/GM;?OTHER QUANTITY : 250U/GM;?FREQUENCY : DAILY;?
     Dates: start: 20250724

REACTIONS (1)
  - Death [None]

NARRATIVE: CASE EVENT DATE: 20251015
